FAERS Safety Report 7830575-1 (Version None)
Quarter: 2011Q4

REPORT INFORMATION
  Report Type: 
  Country: None (occurrence: None)
  Receive Date: 20111021
  Receipt Date: 20111013
  Transmission Date: 20120403
  Serious: Yes (Hospitalization, Disabling, Other)
  Sender: FDA-Public Use
  Company Number: GB-PFIZER INC-2011245719

PATIENT
  Age: 13 Year
  Sex: Female
  Weight: 64.6 kg

DRUGS (10)
  1. LEVETIRACETAM [Concomitant]
     Dosage: 500 MG, 2X/DAY
  2. METHYLPREDNISOLONE [Suspect]
     Indication: CONVULSION
     Dosage: UNK
     Dates: start: 20110701
  3. CLOBAZAM [Concomitant]
     Dosage: 2.5 MG, 2X/DAY
  4. CLOBAZAM [Concomitant]
     Dosage: 10 MG, 2X/DAY
  5. CLOBAZAM [Concomitant]
     Dosage: 9 MG, 2X/DAY
  6. LEVETIRACETAM [Concomitant]
     Dosage: 250 MG, 2X/DAY
  7. LEVETIRACETAM [Concomitant]
     Dosage: 750 MG, 2X/DAY
  8. CLOBAZAM [Concomitant]
     Dosage: 7.5 MG, 2X/DAY
  9. CLOBAZAM [Concomitant]
     Dosage: 5 MG, DAILY
  10. CLOBAZAM [Concomitant]
     Indication: PARTIAL SEIZURES
     Dosage: 2.5 MG, 1X/DAY

REACTIONS (3)
  - NEUROLOGICAL SYMPTOM [None]
  - RASH VESICULAR [None]
  - ENCEPHALITIS ALLERGIC [None]
